FAERS Safety Report 24946857 (Version 2)
Quarter: 2025Q2

REPORT INFORMATION
  Report Type: Spontaneous
  Country: CR (occurrence: CR)
  Receive Date: 20250210
  Receipt Date: 20250511
  Transmission Date: 20250717
  Serious: Yes (Hospitalization, Disabling)
  Sender: ROCHE
  Company Number: CR-ROCHE-10000197158

PATIENT
  Sex: Male

DRUGS (2)
  1. AVASTIN [Suspect]
     Active Substance: BEVACIZUMAB
     Indication: Hepatic cancer
     Route: 065
  2. TECENTRIQ [Suspect]
     Active Substance: ATEZOLIZUMAB
     Indication: Hepatic cancer
     Route: 065

REACTIONS (3)
  - Ischaemia [Unknown]
  - Finger amputation [Unknown]
  - Leg amputation [Unknown]
